FAERS Safety Report 6001431-9 (Version None)
Quarter: 2008Q4

REPORT INFORMATION
  Report Type: 
  Country: None (occurrence: None)
  Receive Date: 20081215
  Receipt Date: 20081204
  Transmission Date: 20090506
  Serious: Yes (Hospitalization)
  Sender: FDA-Public Use
  Company Number: US-BAXTER-2008BH013408

PATIENT
  Sex: Male

DRUGS (2)
  1. DIANEAL [Suspect]
     Indication: ELECTROLYTE IMBALANCE
     Route: 033
     Dates: start: 20080101
  2. DIANEAL [Suspect]
     Indication: OFF LABEL USE
     Route: 033
     Dates: start: 20080101

REACTIONS (2)
  - DYSPNOEA [None]
  - OFF LABEL USE [None]
